FAERS Safety Report 4667030-6 (Version None)
Quarter: 2005Q2

REPORT INFORMATION
  Report Type: 
  Country: None (occurrence: None)
  Receive Date: 20050520
  Receipt Date: 20040329
  Transmission Date: 20051028
  Serious: Yes (Other)
  Sender: FDA-Public Use
  Company Number: PHEH2004US03639

PATIENT
  Age: 58 Year
  Sex: Female

DRUGS (6)
  1. AREDIA [Suspect]
     Indication: MULTIPLE MYELOMA
     Dosage: 90 MG, QMO
     Route: 042
     Dates: start: 20000101, end: 20030101
  2. VINCRISTINE [Concomitant]
  3. ADRIAMYCIN PFS [Concomitant]
  4. DAUNORUBICIN [Concomitant]
  5. OXYCONTIN [Concomitant]
  6. PAXIL [Concomitant]

REACTIONS (6)
  - ABSCESS DRAINAGE [None]
  - ASEPTIC NECROSIS BONE [None]
  - BONE DISORDER [None]
  - INFECTION [None]
  - JAW DISORDER [None]
  - PAIN [None]
